FAERS Safety Report 14475914 (Version 4)
Quarter: 2018Q3

REPORT INFORMATION
  Report Type: Spontaneous
  Country: US (occurrence: US)
  Receive Date: 20180201
  Receipt Date: 20180815
  Transmission Date: 20181010
  Serious: Yes (Hospitalization)
  Sender: FDA-Public Use
  Company Number: US-ACTELION-A-NJ2018-165890

PATIENT
  Age: 26 Year
  Sex: Female

DRUGS (1)
  1. OPSUMIT [Suspect]
     Active Substance: MACITENTAN
     Indication: PULMONARY ARTERIAL HYPERTENSION
     Dosage: 10 MG, QD
     Route: 048
     Dates: start: 20170613

REACTIONS (9)
  - Respiratory tract infection [Unknown]
  - Disease complication [Unknown]
  - Pyrexia [Unknown]
  - Nasopharyngitis [Unknown]
  - Influenza [Unknown]
  - Dyspnoea [Unknown]
  - Sepsis [Unknown]
  - Infection [Unknown]
  - Hypersensitivity [Unknown]

NARRATIVE: CASE EVENT DATE: 201801
